FAERS Safety Report 5280260-8 (Version None)
Quarter: 2007Q1

REPORT INFORMATION
  Report Type: 
  Country: None (occurrence: None)
  Receive Date: 20070329
  Receipt Date: 20070327
  Transmission Date: 20070707
  Serious: Yes (Other)
  Sender: FDA-Public Use
  Company Number: 2007-001398

PATIENT
  Age: 45 Year
  Sex: Male
  Weight: 103 kg

DRUGS (6)
  1. FLOLAN [Suspect]
     Indication: PULMONARY HYPERTENSION
     Dosage: 47NGKM UNKNOWN
     Route: 042
     Dates: start: 20060701
  2. OXYGEN [Concomitant]
     Dosage: 2L AT NIGHT
     Route: 045
  3. LASIX [Concomitant]
     Dosage: 40MG AS DIRECTED
     Route: 048
  4. COUMADIN [Concomitant]
     Dosage: 2.5MG PER DAY
     Route: 048
  5. PRILOSEC [Concomitant]
     Dosage: 20MG PER DAY
     Route: 048
  6. MULTI-VITAMIN [Concomitant]
     Route: 048

REACTIONS (2)
  - CATHETER RELATED COMPLICATION [None]
  - PHARMACEUTICAL PRODUCT COMPLAINT [None]
